FAERS Safety Report 12225223 (Version 1)
Quarter: 2016Q1

REPORT INFORMATION
  Report Type: Spontaneous
  Country: US (occurrence: US)
  Receive Date: 20160331
  Receipt Date: 20160331
  Transmission Date: 20160526
  Serious: Yes (Other)
  Sender: FDA-Public Use
  Company Number: US-BAYER-2016-057441

PATIENT
  Age: 18 Year
  Sex: Female

DRUGS (1)
  1. NATAZIA [Suspect]
     Active Substance: DIENOGEST\ESTRADIOL VALERATE
     Indication: CONTRACEPTION
     Route: 048

REACTIONS (4)
  - Viral infection [Recovered/Resolved]
  - Drug dose omission [None]
  - Vomiting [None]
  - Metrorrhagia [None]

NARRATIVE: CASE EVENT DATE: 201603
